FAERS Safety Report 5236867-7 (Version None)
Quarter: 2007Q1

REPORT INFORMATION
  Report Type: 
  Country: None (occurrence: None)
  Receive Date: 20061208
  Receipt Date: 20050225
  Transmission Date: 20070707
  Serious: Yes (Other)
  Sender: FDA-Public Use
  Company Number: 2005UW03151

PATIENT
  Age: 66 Year
  Sex: Female
  Weight: 77.11 kg

DRUGS (4)
  1. CRESTOR [Suspect]
     Indication: HYPERCHOLESTEROLAEMIA
     Dosage: 10 MG PO
     Route: 048
     Dates: start: 20050201
  2. RESTORIL [Suspect]
  3. ATENOLOL [Suspect]
  4. NAPROXEN [Suspect]

REACTIONS (2)
  - DRUG INTERACTION [None]
  - STOMACH DISCOMFORT [None]
